FAERS Safety Report 25597007 (Version 1)
Quarter: 2025Q3

REPORT INFORMATION
  Report Type: Spontaneous
  Country: US (occurrence: US)
  Receive Date: 20250723
  Receipt Date: 20250723
  Transmission Date: 20251020
  Serious: Yes (Other)
  Sender: LYNE LABORATORIES
  Company Number: US-Lyne Laboratories Inc.-2181035

PATIENT
  Age: 84 Year
  Sex: Female
  Weight: 68.182 kg

DRUGS (5)
  1. DEXAMETHASONE [Suspect]
     Active Substance: DEXAMETHASONE
     Indication: Autoimmune disorder
     Dates: start: 2025
  2. PREDNISONE [Concomitant]
     Active Substance: PREDNISONE
  3. ATORVASTATIN CALCIUM [Concomitant]
     Active Substance: ATORVASTATIN CALCIUM
  4. LOSARTAN [Concomitant]
     Active Substance: LOSARTAN
  5. VALACYCLOVIR [Concomitant]
     Active Substance: VALACYCLOVIR HYDROCHLORIDE

REACTIONS (4)
  - Choking [Unknown]
  - Product use in unapproved indication [Unknown]
  - Product physical issue [Unknown]
  - Near death experience [Unknown]

NARRATIVE: CASE EVENT DATE: 20250101
